FAERS Safety Report 4639136-9 (Version None)
Quarter: 2005Q2

REPORT INFORMATION
  Report Type: 
  Country: None (occurrence: None)
  Receive Date: 20050418
  Receipt Date: 20050331
  Transmission Date: 20051028
  Serious: Yes (Death)
  Sender: FDA-Public Use
  Company Number: 2005AP01170

PATIENT
  Age: 28 Year
  Sex: Male
  Weight: 36.5 kg

DRUGS (15)
  1. DIPRIVAN [Suspect]
     Indication: STATUS EPILEPTICUS
     Dosage: 60 MG ONCE IVD
     Route: 041
     Dates: start: 20030313, end: 20030313
  2. DIPRIVAN [Suspect]
     Indication: STATUS EPILEPTICUS
     Dosage: 1 MG/KG /HR IV
     Route: 042
     Dates: start: 20030313, end: 20030313
  3. DIPRIVAN [Suspect]
     Indication: STATUS EPILEPTICUS
     Dosage: 2.7 MG/KG/HR/IV
     Route: 042
     Dates: start: 20030313, end: 20030313
  4. DIPRIVAN [Suspect]
     Indication: STATUS EPILEPTICUS
     Dosage: 5.75 MG/KG/HR IV
     Route: 042
     Dates: start: 20030313, end: 20030314
  5. DIPRIVAN [Suspect]
     Indication: STATUS EPILEPTICUS
     Dosage: 10 MG/KG/HR IV
     Route: 042
     Dates: start: 20030314, end: 20030316
  6. MIDAZOLAM HCL [Concomitant]
  7. ALEVIATIN [Concomitant]
  8. NOREPINEPHRINEQ [Concomitant]
  9. MEYLON [Concomitant]
  10. BOSMIN [Concomitant]
  11. LANDSEN [Concomitant]
  12. EXCEGRAN [Concomitant]
  13. NELBON [Concomitant]
  14. EURODIN [Concomitant]
  15. DEPAKENE [Concomitant]

REACTIONS (22)
  - ARRHYTHMIA [None]
  - ASCITES [None]
  - CARDIAC FAILURE [None]
  - DILATATION VENTRICULAR [None]
  - HEPATIC CONGESTION [None]
  - HEPATIC STEATOSIS [None]
  - HYPERKALAEMIA [None]
  - INFUSION RELATED REACTION [None]
  - METABOLIC ACIDOSIS [None]
  - MYOCARDIAL ISCHAEMIA [None]
  - NEUROLEPTIC MALIGNANT SYNDROME [None]
  - PLEURAL EFFUSION [None]
  - PROPOFOL INFUSION SYNDROME [None]
  - PULMONARY CONGESTION [None]
  - PULMONARY OEDEMA [None]
  - RENAL FAILURE [None]
  - RHABDOMYOLYSIS [None]
  - SEPTIC SHOCK [None]
  - SHOCK [None]
  - THERAPY NON-RESPONDER [None]
  - VENTRICULAR FIBRILLATION [None]
  - VENTRICULAR TACHYCARDIA [None]
